FAERS Safety Report 15195914 (Version 6)
Quarter: 2021Q1

REPORT INFORMATION
  Report Type: Spontaneous
  Country: US (occurrence: US)
  Receive Date: 20180725
  Receipt Date: 20210111
  Transmission Date: 20210419
  Serious: No
  Sender: FDA-Public Use
  Company Number: US-PFIZER INC-2018299782

PATIENT
  Age: 70 Year
  Sex: Female
  Weight: 73 kg

DRUGS (4)
  1. LYRICA [Suspect]
     Active Substance: PREGABALIN
     Dosage: 600 MG, DAILY (2 CAP IN THE MORNING, 2 CAP AT NOON, 1 CAP IN THE EVENING, 1 CAP AT BEDTIME)
     Route: 048
  2. LYRICA [Suspect]
     Active Substance: PREGABALIN
     Dosage: 600 MG, DAILY (AS DIRECTED 4 TIMES DAILY, 1 CAP MORNING, 2 CAP NOON, 1 CAP EVENING, 2 CAP BEDTIME)
     Route: 048
  3. LYRICA [Suspect]
     Active Substance: PREGABALIN
     Dosage: 500 MG, DAILY (2 CAP IN THE MORNING, 1 CAP AT NOON, 1 CAP IN THE EVENING, 1 CAP AT BEDTIME)
     Route: 048
  4. LYRICA [Suspect]
     Active Substance: PREGABALIN
     Dosage: 100 MG, 4X/DAY (TAKE 1 CAP IN THE MORNING, 2 CAPS AT NOON, 1 CAP IN THE EVENING, 2 CAPS BEDTIME)
     Route: 048

REACTIONS (1)
  - Illness [Unknown]
